FAERS Safety Report 8229145 (Version 6)
Quarter: 2013Q4

REPORT INFORMATION
  Report Type: Report from Study
  Country: US (occurrence: US)
  Receive Date: 20111104
  Receipt Date: 20131118
  Transmission Date: 20140711
  Serious: Yes (Hospitalization)
  Sender: FDA-Public Use
  Company Number: US-JNJFOC-20111012546

PATIENT
  Age: 11 Year
  Sex: Female
  Weight: 31.8 kg

DRUGS (4)
  1. INFLIXIMAB, RECOMBINANT [Suspect]
     Indication: INFLAMMATORY BOWEL DISEASE
     Route: 042
     Dates: start: 20110601
  2. PREDNISONE [Concomitant]
  3. ALBUTEROL [Concomitant]
  4. OMEPRAZOLE [Concomitant]

REACTIONS (2)
  - Abdominal pain [Recovered/Resolved]
  - Obliterative bronchiolitis [Recovered/Resolved]
